FAERS Safety Report 20054898 (Version 2)
Quarter: 2021Q4

REPORT INFORMATION
  Report Type: Report from Study
  Country: FR (occurrence: FR)
  Receive Date: 20211110
  Receipt Date: 20211214
  Transmission Date: 20220303
  Serious: Yes (Hospitalization, Other)
  Sender: FDA-Public Use
  Company Number: FR-BRISTOL-MYERS SQUIBB COMPANY-BMS-2021-117610

PATIENT
  Age: 57 Year
  Sex: Female

DRUGS (3)
  1. NIVOLUMAB [Suspect]
     Active Substance: NIVOLUMAB
     Indication: Ovarian cancer
     Dosage: 184 MILLIGRAM
     Route: 033
     Dates: start: 20211019, end: 20211019
  2. NIVOLUMAB [Suspect]
     Active Substance: NIVOLUMAB
     Dosage: 174 MILLIGRAM
     Route: 033
     Dates: start: 20211110
  3. CISPLATIN [Suspect]
     Active Substance: CISPLATIN
     Indication: Ovarian cancer
     Dosage: 100 MILLIGRAM/SQ. METER, QD
     Route: 033
     Dates: start: 20211013, end: 20211013

REACTIONS (3)
  - Abdominal infection [Recovered/Resolved]
  - Staphylococcal sepsis [Recovered/Resolved]
  - Gamma-glutamyltransferase increased [Recovered/Resolved]

NARRATIVE: CASE EVENT DATE: 20211019
